FAERS Safety Report 9500668 (Version 1)
Quarter: 2013Q1

REPORT INFORMATION
  Report Type: Spontaneous
  Country: US (occurrence: None)
  Receive Date: 20130107
  Receipt Date: 20130107
  Transmission Date: 20140127
  Serious: No
  Sender: FDA-Public Use
  Company Number: PHEH2012US017280

PATIENT
  Age: 47 Year
  Sex: Female
  Weight: 78.9 kg

DRUGS (5)
  1. GILENYA (FTY) CAPSULE, 0.5MG [Suspect]
     Indication: MULTIPLE SCLEROSIS
     Route: 048
     Dates: start: 20120723
  2. LYRICA (PREGABALIN) [Concomitant]
  3. BACLOFEN (BACLOFEN) [Concomitant]
  4. PROVIGIL (MODAFINIL) [Concomitant]
  5. FAMPRIDINE (FAMPRIDINE) [Concomitant]

REACTIONS (9)
  - Feeling abnormal [None]
  - Insomnia [None]
  - Balance disorder [None]
  - Burning sensation [None]
  - Aphasia [None]
  - Muscular weakness [None]
  - Nausea [None]
  - Depressed mood [None]
  - Asthenia [None]
